FAERS Safety Report 5820193-9 (Version None)
Quarter: 2008Q3

REPORT INFORMATION
  Report Type: 
  Country: None (occurrence: None)
  Receive Date: 20080724
  Receipt Date: 20080717
  Transmission Date: 20090109
  Serious: Yes (Life-Threatening, Hospitalization, Other)
  Sender: FDA-Public Use
  Company Number: PHHY2008JP08079

PATIENT
  Sex: Female
  Weight: 75 kg

DRUGS (11)
  1. NEORAL [Suspect]
     Indication: INTERSTITIAL LUNG DISEASE
     Dosage: 200 MG/DAY
     Route: 048
     Dates: start: 20080408
  2. NEORAL [Suspect]
     Dosage: 100 MG/DAY
     Route: 048
  3. BREDININ [Concomitant]
     Indication: INTERSTITIAL LUNG DISEASE
     Route: 048
  4. PREDONINE [Concomitant]
     Indication: INTERSTITIAL LUNG DISEASE
     Dosage: 40 MG
     Route: 048
     Dates: start: 20080408
  5. PREDONINE [Concomitant]
     Dosage: 35 MG
  6. PREDONINE [Concomitant]
     Dosage: 30 MG
  7. PREDONINE-1 [Concomitant]
     Indication: INTERSTITIAL LUNG DISEASE
     Route: 042
  8. INSULIN [Concomitant]
     Indication: DIABETES MELLITUS
     Dosage: UNK
     Route: 058
  9. CANDESARTAN CILEXETIL [Concomitant]
     Indication: HYPERTENSION
     Dosage: 4 MG
     Route: 048
     Dates: end: 20080428
  10. FAMOTIDINE [Concomitant]
     Indication: PROPHYLAXIS AGAINST GASTROINTESTINAL ULCER
     Dosage: 40 MG/DAY
     Route: 048
     Dates: start: 20080408, end: 20080418
  11. TAKEPRON [Concomitant]
     Indication: PROPHYLAXIS AGAINST GASTROINTESTINAL ULCER
     Dosage: 30 MG
     Route: 048
     Dates: start: 20080429

REACTIONS (5)
  - ABDOMINAL PAIN [None]
  - HAEMORRHAGE SUBCUTANEOUS [None]
  - INTESTINAL HAEMORRHAGE [None]
  - INTRA-ABDOMINAL HAEMATOMA [None]
  - THERAPEUTIC EMBOLISATION [None]
